FAERS Safety Report 5730070-X (Version None)
Quarter: 2008Q2

REPORT INFORMATION
  Report Type: 
  Country: None (occurrence: None)
  Receive Date: 20080502
  Receipt Date: 20080424
  Transmission Date: 20081010
  Serious: Yes (Hospitalization)
  Sender: FDA-Public Use
  Company Number: 167-C5013-08041760

PATIENT
  Age: 66 Year
  Sex: Male

DRUGS (2)
  1. CC-5013 (LENALIDOMIDE) (CAPSULES) [Suspect]
     Indication: MULTIPLE MYELOMA
     Dosage: 15 MG, DAILY X21 DAYS EVERY 28 DAYS, ORAL
     Route: 048
     Dates: start: 20070618, end: 20070801
  2. DEXAMETHASONE TAB [Suspect]
     Indication: MULTIPLE MYELOMA
     Dosage: 40 MG, DAYS 1-4, 15-18, EVERY 28 DAYS, ORAL
     Route: 048
     Dates: start: 20070618, end: 20070719

REACTIONS (6)
  - INFECTION IN AN IMMUNOCOMPROMISED HOST [None]
  - LUNG INFECTION PSEUDOMONAL [None]
  - NEUTROPENIC SEPSIS [None]
  - PSEUDOMONAS INFECTION [None]
  - SHOCK [None]
  - SPUTUM DISCOLOURED [None]
